FAERS Safety Report 19358000 (Version 1)
Quarter: 2021Q2

REPORT INFORMATION
  Report Type: Spontaneous
  Country: GB (occurrence: GB)
  Receive Date: 20210601
  Receipt Date: 20210601
  Transmission Date: 20210717
  Serious: Yes (Life-Threatening, Other)
  Sender: FDA-Public Use
  Company Number: GB-TEVA-2021-GB-1916952

PATIENT
  Age: 73 Year
  Sex: Female
  Weight: 57.6 kg

DRUGS (5)
  1. ATORVASTATIN [Concomitant]
     Active Substance: ATORVASTATIN
  2. CALCI?D [Concomitant]
     Active Substance: CALCIUM CARBONATE\CHOLECALCIFEROL
  3. LYRINEL XL [Concomitant]
     Active Substance: OXYBUTYNIN
  4. ALENDRONIC ACID [Suspect]
     Active Substance: ALENDRONIC ACID
     Indication: OSTEOPENIA
     Dosage: UNKNOWN
     Route: 048
     Dates: start: 1996, end: 202008
  5. RISEDRONATE [Suspect]
     Active Substance: RISEDRONATE SODIUM
     Indication: OSTEOPENIA
     Dosage: UNKNOWN, WEEKLY BY MOUTH BEFORE FOOD AND UPRIGHT FOR 30 MINUTES.
     Route: 048
     Dates: start: 1996, end: 202008

REACTIONS (1)
  - Oesophageal squamous cell carcinoma [Recovered/Resolved]
